FAERS Safety Report 7290192-1 (Version None)
Quarter: 2011Q1

REPORT INFORMATION
  Report Type: 
  Country: None (occurrence: None)
  Receive Date: 20110214
  Receipt Date: 20110203
  Transmission Date: 20110831
  Serious: Yes (Other)
  Sender: FDA-Public Use
  Company Number: PHHY2010DE19422

PATIENT
  Age: 45 Year
  Sex: Female

DRUGS (2)
  1. DEPO-CLINOVIR [Concomitant]
     Dosage: UNK
  2. EXTAVIA [Suspect]
     Indication: MULTIPLE SCLEROSIS
     Dosage: 250 UG, QOD
     Route: 058
     Dates: start: 20090501

REACTIONS (6)
  - MUSCULAR WEAKNESS [None]
  - INJECTION SITE INFLAMMATION [None]
  - GAIT DISTURBANCE [None]
  - MULTIPLE SCLEROSIS RELAPSE [None]
  - CHILLS [None]
  - FEELING HOT [None]
